FAERS Safety Report 20839534 (Version 3)
Quarter: 2022Q3

REPORT INFORMATION
  Report Type: Report from Study
  Country: US (occurrence: US)
  Receive Date: 20220517
  Receipt Date: 20220721
  Transmission Date: 20221026
  Serious: Yes (Hospitalization)
  Sender: FDA-Public Use
  Company Number: US-KARYOPHARM-2022KPT000544

PATIENT
  Age: 67 Year
  Sex: Female
  Weight: 79.1 kg

DRUGS (16)
  1. PLACEBO [Suspect]
     Active Substance: UNSPECIFIED INGREDIENT
     Indication: Endometrial cancer
     Dates: start: 20201207, end: 20210329
  2. SELINEXOR [Suspect]
     Active Substance: SELINEXOR
     Indication: Endometrial cancer
     Dates: start: 20201207, end: 20210329
  3. PLACEBO [Suspect]
     Active Substance: UNSPECIFIED INGREDIENT
     Dates: start: 20220328, end: 20220509
  4. SELINEXOR [Suspect]
     Active Substance: SELINEXOR
     Dates: start: 20220328, end: 20220509
  5. PLACEBO [Suspect]
     Active Substance: UNSPECIFIED INGREDIENT
     Dates: start: 20220516
  6. SELINEXOR [Suspect]
     Active Substance: SELINEXOR
     Dates: start: 20220516
  7. ATORVASTATIN [Concomitant]
     Active Substance: ATORVASTATIN
     Indication: Blood cholesterol increased
     Dosage: 10 MG, QD
     Route: 048
     Dates: start: 20110202
  8. VITAMIN D3 [Concomitant]
     Active Substance: CHOLECALCIFEROL
     Indication: Prophylaxis
     Dosage: UNK, QD
     Route: 048
     Dates: start: 20201116
  9. GABAPENTIN [Concomitant]
     Active Substance: GABAPENTIN
     Indication: Peripheral sensory neuropathy
     Dosage: 600 MG, BID IN THE MORNING AND NOON
     Route: 048
     Dates: start: 20220419
  10. GABAPENTIN [Concomitant]
     Active Substance: GABAPENTIN
     Dosage: 900 MG, QHS
     Route: 048
     Dates: start: 20220419
  11. VASCEPA [Concomitant]
     Active Substance: ICOSAPENT ETHYL
     Indication: Hypertriglyceridaemia
     Dosage: 2 G, BID
     Route: 048
     Dates: start: 20200910
  12. ONDANSETRON [Concomitant]
     Active Substance: ONDANSETRON
     Indication: Prophylaxis of nausea and vomiting
     Dosage: 8 MG, PRN
     Route: 048
     Dates: start: 20201207
  13. OLANZAPINE [Concomitant]
     Active Substance: OLANZAPINE
     Indication: Prophylaxis of nausea and vomiting
     Dosage: 2.5 MG, QHS
     Route: 048
     Dates: start: 20201207
  14. CALTRATE WITH VITAMIN D [Concomitant]
     Active Substance: CALCIUM CARBONATE\CHOLECALCIFEROL
     Indication: Osteoporosis
     Dosage: 600 MG, QD
     Route: 048
     Dates: start: 20210318
  15. FILGRASTIM SNDZ [Concomitant]
     Indication: Neutrophil count decreased
     Dosage: 300 UG, QD ON DAYS 1-5
     Route: 058
     Dates: start: 20220426, end: 20220430
  16. LOPERAMIDE [Concomitant]
     Active Substance: LOPERAMIDE
     Dosage: 4 MG, AT ONSET OF DIARRHEA, THEN 2 MG AFTER EACH LOOSE STOOL
     Route: 048
     Dates: start: 20201207

REACTIONS (2)
  - Neutropenia [Recovered/Resolved]
  - Upper respiratory tract infection [Recovered/Resolved]

NARRATIVE: CASE EVENT DATE: 20220508
